FAERS Safety Report 6856577-X (Version None)
Quarter: 2010Q3

REPORT INFORMATION
  Report Type: 
  Country: None (occurrence: None)
  Receive Date: 20100719
  Receipt Date: 20100714
  Transmission Date: 20110219
  Serious: Yes (Other)
  Sender: FDA-Public Use
  Company Number: GB-ROCHE-715236

PATIENT
  Age: 47 Year
  Sex: Male
  Weight: 78 kg

DRUGS (4)
  1. NAPROXEN [Suspect]
     Dosage: ACTION TAKEN: DRUG WITHDROWN.
     Route: 048
     Dates: start: 20100616, end: 20100630
  2. ACETAMINOPHEN AND CODEINE PHOSPHATE [Concomitant]
     Route: 048
  3. DICLOFENAC [Concomitant]
     Route: 048
     Dates: start: 20100201, end: 20100616
  4. SIMVASTATIN [Concomitant]
     Route: 048
     Dates: start: 20100201

REACTIONS (2)
  - BLISTER [None]
  - SKIN MASS [None]
